FAERS Safety Report 18156298 (Version 1)
Quarter: 2020Q3

REPORT INFORMATION
  Report Type: Spontaneous
  Country: US (occurrence: US)
  Receive Date: 20200815
  Receipt Date: 20200815
  Transmission Date: 20201103
  Serious: Yes (Other)
  Sender: FDA-Public Use
  Company Number: None

PATIENT
  Age: 68 Year
  Sex: Female
  Weight: 104.4 kg

DRUGS (6)
  1. VITAMINS A [Concomitant]
  2. VITAMIN D [Concomitant]
     Active Substance: VITAMIN D NOS
  3. ICY HOT WITH LIDOCAINE [Suspect]
     Active Substance: LIDOCAINE\MENTHOL
     Indication: ARTHRALGIA
     Dosage: ?          OTHER STRENGTH:4% LIDOCAINE  HCL;?
     Route: 061
     Dates: start: 20200312, end: 20200710
  4. ASPIRIN. [Concomitant]
     Active Substance: ASPIRIN
  5. TURMERIC [Concomitant]
     Active Substance: HERBALS\TURMERIC
  6. VITAMIN E [Concomitant]
     Active Substance: .ALPHA.-TOCOPHEROL

REACTIONS (2)
  - Chest discomfort [None]
  - Respiratory disorder [None]

NARRATIVE: CASE EVENT DATE: 20200812
